FAERS Safety Report 12625608 (Version 1)
Quarter: 2016Q3

REPORT INFORMATION
  Report Type: Spontaneous
  Country: CA (occurrence: CA)
  Receive Date: 20160805
  Receipt Date: 20160805
  Transmission Date: 20161109
  Serious: Yes (Other)
  Sender: FDA-Public Use
  Company Number: PHHY2016CA105104

PATIENT
  Age: 54 Year
  Sex: Female

DRUGS (3)
  1. THIAMAZOLE [Suspect]
     Active Substance: METHIMAZOLE
     Dosage: 15 MG, BID PO
     Route: 065
  2. AMIODARONE [Suspect]
     Active Substance: AMIODARONE
     Indication: VENTRICULAR TACHYCARDIA
     Route: 065
  3. THIAMAZOLE [Suspect]
     Active Substance: METHIMAZOLE
     Indication: HYPERTHYROIDISM
     Dosage: 10 MG, BID, PO
     Route: 065

REACTIONS (3)
  - Febrile neutropenia [Unknown]
  - Renal failure [Unknown]
  - Hyperthyroidism [Unknown]
